FAERS Safety Report 7227604-5 (Version None)
Quarter: 2011Q1

REPORT INFORMATION
  Report Type: 
  Country: None (occurrence: None)
  Receive Date: 20110114
  Receipt Date: 20110104
  Transmission Date: 20110831
  Serious: Yes (Disabling, Other)
  Sender: FDA-Public Use
  Company Number: US-ALLERGAN-1007771US

PATIENT
  Age: 54 Year
  Sex: Female
  Weight: 58.957 kg

DRUGS (3)
  1. ANGELIQ [Concomitant]
     Indication: HORMONE REPLACEMENT THERAPY
     Dosage: UNK
  2. BOTOXA? [Suspect]
     Indication: FACIAL SPASM
     Dosage: UNK
     Dates: start: 20091119, end: 20091119
  3. SYNTHROID [Concomitant]
     Indication: HYPOTHYROIDISM
     Dosage: .075 MG, QD

REACTIONS (6)
  - EYE PAIN [None]
  - VISION BLURRED [None]
  - OCULAR SURFACE DISEASE [None]
  - KERATITIS [None]
  - HAEMATOMA [None]
  - VIITH NERVE PARALYSIS [None]
